FAERS Safety Report 9253723 (Version 2)
Quarter: 2013Q2

REPORT INFORMATION
  Report Type: Spontaneous
  Country: JP (occurrence: JP)
  Receive Date: 20130425
  Receipt Date: 20130521
  Transmission Date: 20140414
  Serious: Yes (Death, Hospitalization)
  Sender: FDA-Public Use
  Company Number: JP-ROCHE-1206676

PATIENT
  Age: 74 Year
  Sex: Female
  Weight: 37 kg

DRUGS (7)
  1. AVASTIN [Suspect]
     Indication: BREAST CANCER METASTATIC
     Route: 041
     Dates: start: 20130122, end: 20130305
  2. OXYCONTIN [Concomitant]
     Route: 048
     Dates: end: 20130318
  3. CELECOX [Concomitant]
     Route: 048
     Dates: end: 20130318
  4. ARIMIDEX [Concomitant]
     Indication: BREAST CANCER METASTATIC
     Route: 048
     Dates: end: 20130318
  5. ALESION [Concomitant]
     Route: 048
     Dates: end: 20130318
  6. DEXAMETHASONE [Concomitant]
     Indication: PROPHYLAXIS
     Route: 048
     Dates: end: 20130308
  7. TAXOL [Concomitant]
     Indication: BREAST CANCER METASTATIC
     Route: 041
     Dates: start: 20130122, end: 20130305

REACTIONS (4)
  - Tumour necrosis [Fatal]
  - Mediastinitis [Fatal]
  - Sepsis [Fatal]
  - Large intestine perforation [Unknown]
